FAERS Safety Report 4283209-X (Version None)
Quarter: 2004Q1

REPORT INFORMATION
  Report Type: 
  Country: None (occurrence: None)
  Receive Date: 20040129
  Receipt Date: 20040112
  Transmission Date: 20041129
  Serious: Yes (Hospitalization)
  Sender: FDA-Public Use
  Company Number: 2003PK02143

PATIENT
  Age: 56 Year
  Sex: Female
  Weight: 85 kg

DRUGS (10)
  1. SEROQUEL [Suspect]
     Indication: SCHIZOAFFECTIVE DISORDER
     Dosage: 300 MG DAILY PO
     Route: 048
     Dates: start: 20030609, end: 20030801
  2. SEROQUEL [Suspect]
     Indication: SCHIZOAFFECTIVE DISORDER
     Dosage: 300 MG DAILY PO
     Route: 048
     Dates: start: 20030801
  3. DIURETIC [Suspect]
     Indication: CARDIAC FAILURE
  4. EUPHYLONG [Concomitant]
  5. KARVEZIDE [Concomitant]
  6. LEVOTHYROXINE SODIUM [Concomitant]
  7. MELPERON ^CT-ARZNEIMITTEL^ [Concomitant]
  8. NOVERIL [Concomitant]
  9. MIRTAZAPINE [Concomitant]
  10. TEMAZEPAM [Concomitant]

REACTIONS (6)
  - ARRHYTHMIA [None]
  - ATRIAL FIBRILLATION [None]
  - BLOOD SODIUM DECREASED [None]
  - CIRCULATORY COLLAPSE [None]
  - HYPOKALAEMIA [None]
  - VISUAL DISTURBANCE [None]
